FAERS Safety Report 4570626-3 (Version None)
Quarter: 2005Q1

REPORT INFORMATION
  Report Type: 
  Country: None (occurrence: None)
  Receive Date: 20050202
  Receipt Date: 20050202
  Transmission Date: 20050727
  Serious: Yes (Hospitalization)
  Sender: FDA-Public Use
  Company Number: None

PATIENT
  Age: 52 Year
  Sex: Female
  Weight: 97.2 kg

DRUGS (1)
  1. OXALIPLATIN [Suspect]
     Indication: OVARIAN CANCER
     Dosage: INTRAVENOU
     Route: 042

REACTIONS (3)
  - ANAPHYLACTIC REACTION [None]
  - ASTHENIA [None]
  - PNEUMONIA [None]
